FAERS Safety Report 5720468-8 (Version None)
Quarter: 2008Q2

REPORT INFORMATION
  Report Type: 
  Country: None (occurrence: None)
  Receive Date: 20080423
  Receipt Date: 20070713
  Transmission Date: 20081010
  Serious: Yes (Death, Other)
  Sender: FDA-Public Use
  Company Number: 240495

PATIENT
  Age: 78 Year
  Sex: Female

DRUGS (10)
  1. AVASTIN [Suspect]
     Indication: COLORECTAL CANCER METASTATIC
     Dates: start: 20070306
  2. FLUOROURACIL [Concomitant]
  3. LEUCOVORIN CALCIUM [Concomitant]
  4. OXALIPLATIN [Concomitant]
  5. DIOVAN [Concomitant]
  6. ISORDIL [Concomitant]
  7. ATENOLOL [Concomitant]
  8. ASPIRIN [Concomitant]
  9. ALOXI [Concomitant]
  10. HYDROCHLOROTHIAZIDE [Concomitant]

REACTIONS (4)
  - FEBRILE NEUTROPENIA [None]
  - MUCOSAL INFLAMMATION [None]
  - RENAL FAILURE ACUTE [None]
  - SEPTIC SHOCK [None]
